FAERS Safety Report 7995601-8 (Version None)
Quarter: 2011Q4

REPORT INFORMATION
  Report Type: 
  Country: None (occurrence: None)
  Receive Date: 20111220
  Receipt Date: 20111209
  Transmission Date: 20120403
  Serious: Yes (Hospitalization, Disabling)
  Sender: FDA-Public Use
  Company Number: US-MERCK-1003USA01388

PATIENT
  Age: 75 Year
  Sex: Female
  Weight: 68 kg

DRUGS (9)
  1. ASCORBIC ACID [Concomitant]
     Route: 065
     Dates: start: 19700101
  2. FOSAMAX [Suspect]
     Indication: OSTEOPOROSIS
     Route: 048
     Dates: start: 20070101
  3. BACLOFEN [Concomitant]
     Route: 065
     Dates: start: 19760101
  4. ZANTAC [Concomitant]
     Route: 065
  5. VITAMIN E [Concomitant]
     Route: 065
     Dates: start: 19700101
  6. ACTONEL [Concomitant]
     Indication: OSTEOPOROSIS
     Route: 065
     Dates: start: 19700101
  7. VITAMINS (UNSPECIFIED) [Concomitant]
     Route: 048
     Dates: start: 19700101
  8. FOSAMAX [Suspect]
     Route: 048
     Dates: start: 20070101
  9. BACTRIM [Concomitant]
     Route: 065

REACTIONS (19)
  - COMPRESSION FRACTURE [None]
  - DRUG ADMINISTRATION ERROR [None]
  - ATRIAL FIBRILLATION [None]
  - TENDONITIS [None]
  - FALL [None]
  - OSTEOPOROSIS [None]
  - SPINAL FRACTURE [None]
  - CONSTIPATION [None]
  - IMPAIRED HEALING [None]
  - STRESS FRACTURE [None]
  - BUNION [None]
  - OEDEMA PERIPHERAL [None]
  - FEMUR FRACTURE [None]
  - ANAEMIA POSTOPERATIVE [None]
  - SPINAL COMPRESSION FRACTURE [None]
  - OSTEOARTHRITIS [None]
  - FRACTURE NONUNION [None]
  - LOW TURNOVER OSTEOPATHY [None]
  - URINARY TRACT INFECTION [None]
